FAERS Safety Report 9373455 (Version 1)
Quarter: 2013Q2

REPORT INFORMATION
  Report Type: Spontaneous
  Country: US (occurrence: US)
  Receive Date: 20130627
  Receipt Date: 20130627
  Transmission Date: 20140414
  Serious: No
  Sender: FDA-Public Use
  Company Number: US-009507513-1306USA011911

PATIENT
  Sex: 0

DRUGS (1)
  1. ZETIA [Suspect]
     Dosage: 10 MG, QD
     Route: 048
     Dates: start: 201207

REACTIONS (3)
  - Product packaging issue [Unknown]
  - Drug dose omission [Unknown]
  - No adverse event [Unknown]
